FAERS Safety Report 15201368 (Version 2)
Quarter: 2018Q4

REPORT INFORMATION
  Report Type: Spontaneous
  Country: JP (occurrence: JP)
  Receive Date: 20180726
  Receipt Date: 20181225
  Transmission Date: 20190204
  Serious: Yes (Other)
  Sender: FDA-Public Use
  Company Number: JP-ROCHE-2159974

PATIENT
  Age: 48 Year
  Sex: Male
  Weight: 65 kg

DRUGS (105)
  1. AVASTIN [Suspect]
     Active Substance: BEVACIZUMAB
     Dosage: 200 ML/H
     Route: 041
     Dates: start: 20161029, end: 20161029
  2. AVASTIN [Suspect]
     Active Substance: BEVACIZUMAB
     Dosage: 67 ML/H
     Route: 041
     Dates: start: 20170401, end: 20170401
  3. AVASTIN [Suspect]
     Active Substance: BEVACIZUMAB
     Dosage: 67 ML/H
     Route: 041
     Dates: start: 20170428, end: 20170428
  4. AVASTIN [Suspect]
     Active Substance: BEVACIZUMAB
     Dosage: 67 ML/H
     Route: 041
     Dates: start: 20171012, end: 20171012
  5. ELPLAT [Suspect]
     Active Substance: OXALIPLATIN
     Dosage: DOSAGE IS UNCERTAIN.
     Route: 041
     Dates: start: 20171028, end: 20171028
  6. CALCIUM LEVOFOLINATE [Suspect]
     Active Substance: LEVOLEUCOVORIN CALCIUM
     Dosage: DOSAGE IS UNCERTAIN.
     Route: 041
     Dates: start: 20160611, end: 20160611
  7. CALCIUM LEVOFOLINATE [Suspect]
     Active Substance: LEVOLEUCOVORIN CALCIUM
     Dosage: DOSAGE IS UNCERTAIN.
     Route: 041
     Dates: start: 20171202, end: 20171202
  8. CALCIUM LEVOFOLINATE [Suspect]
     Active Substance: LEVOLEUCOVORIN CALCIUM
     Dosage: DOSAGE IS UNCERTAIN.
     Route: 041
     Dates: start: 20180621, end: 20180621
  9. ALOXI [Concomitant]
     Active Substance: PALONOSETRON HYDROCHLORIDE
     Dosage: UNCERTAIN DOSAGE AND 100ML/H
     Route: 041
     Dates: start: 20161029, end: 20161029
  10. ALOXI [Concomitant]
     Active Substance: PALONOSETRON HYDROCHLORIDE
     Dosage: UNCERTAIN DOSAGE AND 100ML/H
     Route: 041
     Dates: start: 20170617, end: 20170617
  11. ALOXI [Concomitant]
     Active Substance: PALONOSETRON HYDROCHLORIDE
     Dosage: UNCERTAIN DOSAGE AND 100ML/H
     Route: 041
     Dates: start: 20180315, end: 20180426
  12. ALOXI [Concomitant]
     Active Substance: PALONOSETRON HYDROCHLORIDE
     Dosage: UNCERTAIN DOSAGE AND 100ML/H
     Route: 041
     Dates: start: 20180621, end: 20180621
  13. AVASTIN [Suspect]
     Active Substance: BEVACIZUMAB
     Dosage: 100ML/HR
     Route: 041
     Dates: start: 20160625, end: 20160625
  14. AVASTIN [Suspect]
     Active Substance: BEVACIZUMAB
     Dosage: 200 ML/H
     Route: 041
     Dates: start: 20161203, end: 20161224
  15. AVASTIN [Suspect]
     Active Substance: BEVACIZUMAB
     Dosage: 67 ML/H
     Route: 041
     Dates: start: 20170202, end: 20170202
  16. AVASTIN [Suspect]
     Active Substance: BEVACIZUMAB
     Dosage: 67 ML/H
     Route: 041
     Dates: start: 20180529, end: 20180529
  17. ELPLAT [Suspect]
     Active Substance: OXALIPLATIN
     Dosage: DOSAGE IS UNCERTAIN.
     Route: 041
     Dates: start: 20160625, end: 20160625
  18. CALCIUM LEVOFOLINATE [Suspect]
     Active Substance: LEVOLEUCOVORIN CALCIUM
     Dosage: DOSAGE IS UNCERTAIN.
     Route: 041
     Dates: start: 20161203, end: 20161224
  19. CALCIUM LEVOFOLINATE [Suspect]
     Active Substance: LEVOLEUCOVORIN CALCIUM
     Dosage: DOSAGE IS UNCERTAIN.
     Route: 041
     Dates: start: 20170202, end: 20170202
  20. ALOXI [Concomitant]
     Active Substance: PALONOSETRON HYDROCHLORIDE
     Dosage: UNCERTAIN DOSAGE AND 100ML/H
     Route: 041
     Dates: start: 20160820, end: 20160903
  21. ALOXI [Concomitant]
     Active Substance: PALONOSETRON HYDROCHLORIDE
     Dosage: UNCERTAIN DOSAGE AND 100ML/H
     Route: 041
     Dates: start: 20170428, end: 20170428
  22. ALOXI [Concomitant]
     Active Substance: PALONOSETRON HYDROCHLORIDE
     Dosage: UNCERTAIN DOSAGE AND 100ML/H
     Route: 041
     Dates: start: 20170520, end: 20170520
  23. DECADRON [Concomitant]
     Active Substance: DEXAMETHASONE
     Dosage: 100ML/H
     Route: 065
     Dates: start: 20170401, end: 20170401
  24. DECADRON [Concomitant]
     Active Substance: DEXAMETHASONE
     Dosage: 100ML/H
     Route: 065
     Dates: start: 20170617, end: 20170617
  25. DECADRON [Concomitant]
     Active Substance: DEXAMETHASONE
     Dosage: 100ML/H
     Route: 065
     Dates: start: 20171012, end: 20171012
  26. DECADRON [Concomitant]
     Active Substance: DEXAMETHASONE
     Dosage: 100ML/H
     Route: 065
     Dates: start: 20171028, end: 20171028
  27. DECADRON [Concomitant]
     Active Substance: DEXAMETHASONE
     Dosage: 100ML/H
     Route: 065
     Dates: start: 20171202, end: 20171202
  28. AVASTIN [Suspect]
     Active Substance: BEVACIZUMAB
     Dosage: 67 ML/H
     Route: 041
     Dates: start: 20160723, end: 20160723
  29. AVASTIN [Suspect]
     Active Substance: BEVACIZUMAB
     Dosage: 67 ML/H
     Route: 041
     Dates: start: 20180707, end: 20180707
  30. ELPLAT [Suspect]
     Active Substance: OXALIPLATIN
     Dosage: DOSAGE IS UNCERTAIN.
     Route: 041
     Dates: start: 20160611, end: 20160611
  31. ELPLAT [Suspect]
     Active Substance: OXALIPLATIN
     Dosage: DOSAGE IS UNCERTAIN.
     Route: 041
     Dates: start: 20180621, end: 20180621
  32. CALCIUM LEVOFOLINATE [Suspect]
     Active Substance: LEVOLEUCOVORIN CALCIUM
     Dosage: DOSAGE IS UNCERTAIN.
     Route: 041
     Dates: start: 20160723, end: 20160723
  33. ALOXI [Concomitant]
     Active Substance: PALONOSETRON HYDROCHLORIDE
     Dosage: UNCERTAIN DOSAGE AND 100ML/H
     Route: 041
     Dates: start: 20170202, end: 20170202
  34. ALOXI [Concomitant]
     Active Substance: PALONOSETRON HYDROCHLORIDE
     Dosage: UNCERTAIN DOSAGE AND 100ML/H
     Route: 041
     Dates: start: 20170722, end: 20170722
  35. ALOXI [Concomitant]
     Active Substance: PALONOSETRON HYDROCHLORIDE
     Dosage: UNCERTAIN DOSAGE AND 100ML/H
     Route: 041
     Dates: start: 20171028, end: 20171028
  36. DECADRON [Concomitant]
     Active Substance: DEXAMETHASONE
     Dosage: 100ML/H
     Route: 065
     Dates: start: 20170304, end: 20170304
  37. AVASTIN [Suspect]
     Active Substance: BEVACIZUMAB
     Dosage: 67 ML/H
     Route: 041
     Dates: start: 20170304, end: 20170304
  38. AVASTIN [Suspect]
     Active Substance: BEVACIZUMAB
     Dosage: 67 ML/H
     Route: 041
     Dates: start: 20170520, end: 20170520
  39. ELPLAT [Suspect]
     Active Substance: OXALIPLATIN
     Dosage: DOSAGE IS UNCERTAIN.
     Route: 041
     Dates: start: 20160709, end: 20160709
  40. CALCIUM LEVOFOLINATE [Suspect]
     Active Substance: LEVOLEUCOVORIN CALCIUM
     Dosage: DOSAGE IS UNCERTAIN.
     Route: 041
     Dates: start: 20160626, end: 20160626
  41. CALCIUM LEVOFOLINATE [Suspect]
     Active Substance: LEVOLEUCOVORIN CALCIUM
     Dosage: DOSAGE IS UNCERTAIN.
     Route: 041
     Dates: start: 20171212, end: 20171212
  42. CALCIUM LEVOFOLINATE [Suspect]
     Active Substance: LEVOLEUCOVORIN CALCIUM
     Dosage: DOSAGE IS UNCERTAIN.
     Route: 041
     Dates: start: 20180529, end: 20180529
  43. FLUOROURACIL. [Concomitant]
     Active Substance: FLUOROURACIL
     Indication: RECTAL CANCER
     Dosage: DOSAGE IS UNCERTAIN.
     Route: 040
     Dates: start: 2016
  44. DECADRON [Concomitant]
     Active Substance: DEXAMETHASONE
     Dosage: 100ML/H
     Route: 065
     Dates: start: 20170202, end: 20170202
  45. DECADRON [Concomitant]
     Active Substance: DEXAMETHASONE
     Dosage: 100ML/H
     Route: 065
     Dates: start: 20170722, end: 20170722
  46. AVASTIN [Suspect]
     Active Substance: BEVACIZUMAB
     Dosage: 67 ML/H
     Route: 041
     Dates: start: 20170617, end: 20170617
  47. ELPLAT [Suspect]
     Active Substance: OXALIPLATIN
     Indication: RECTAL CANCER
     Dosage: DOSAGE IS UNCERTAIN.
     Route: 041
     Dates: start: 2016, end: 20180621
  48. CALCIUM LEVOFOLINATE [Suspect]
     Active Substance: LEVOLEUCOVORIN CALCIUM
     Indication: RECTAL CANCER
     Dosage: DOSAGE IS UNCERTAIN.
     Route: 041
     Dates: start: 2016
  49. CALCIUM LEVOFOLINATE [Suspect]
     Active Substance: LEVOLEUCOVORIN CALCIUM
     Dosage: DOSAGE IS UNCERTAIN.
     Route: 041
     Dates: start: 20161001, end: 20161001
  50. CALCIUM LEVOFOLINATE [Suspect]
     Active Substance: LEVOLEUCOVORIN CALCIUM
     Dosage: DOSAGE IS UNCERTAIN.
     Route: 041
     Dates: start: 20170401, end: 20170401
  51. ALOXI [Concomitant]
     Active Substance: PALONOSETRON HYDROCHLORIDE
     Dosage: UNCERTAIN DOSAGE AND 100ML/H
     Route: 041
     Dates: start: 20160625, end: 20160625
  52. ALOXI [Concomitant]
     Active Substance: PALONOSETRON HYDROCHLORIDE
     Dosage: UNCERTAIN DOSAGE AND 100ML/H
     Route: 041
     Dates: start: 20160723, end: 20160723
  53. ALOXI [Concomitant]
     Active Substance: PALONOSETRON HYDROCHLORIDE
     Dosage: UNCERTAIN DOSAGE AND 100ML/H
     Route: 041
     Dates: start: 20161203, end: 20161224
  54. ALOXI [Concomitant]
     Active Substance: PALONOSETRON HYDROCHLORIDE
     Dosage: UNCERTAIN DOSAGE AND 100ML/H
     Route: 041
     Dates: start: 20170304, end: 20170304
  55. ALOXI [Concomitant]
     Active Substance: PALONOSETRON HYDROCHLORIDE
     Dosage: UNCERTAIN DOSAGE AND 100ML/H
     Route: 041
     Dates: start: 20170401, end: 20170401
  56. ALOXI [Concomitant]
     Active Substance: PALONOSETRON HYDROCHLORIDE
     Dosage: UNCERTAIN DOSAGE AND 100ML/H
     Route: 041
     Dates: start: 20171012, end: 20171012
  57. ALOXI [Concomitant]
     Active Substance: PALONOSETRON HYDROCHLORIDE
     Dosage: UNCERTAIN DOSAGE AND 100ML/H
     Route: 041
     Dates: start: 20180707, end: 20180707
  58. DECADRON [Concomitant]
     Active Substance: DEXAMETHASONE
     Dosage: 100ML/H
     Route: 065
     Dates: start: 20160611, end: 20160611
  59. DECADRON [Concomitant]
     Active Substance: DEXAMETHASONE
     Dosage: 100ML/H
     Route: 065
     Dates: start: 20160820, end: 20160903
  60. DECADRON [Concomitant]
     Active Substance: DEXAMETHASONE
     Dosage: 100ML/H
     Route: 065
     Dates: start: 20161203, end: 20161224
  61. DECADRON [Concomitant]
     Active Substance: DEXAMETHASONE
     Dosage: 100ML/H
     Route: 065
     Dates: start: 20170520, end: 20170520
  62. DECADRON [Concomitant]
     Active Substance: DEXAMETHASONE
     Dosage: 100ML/H
     Route: 065
     Dates: start: 20180315, end: 20180426
  63. AVASTIN [Suspect]
     Active Substance: BEVACIZUMAB
     Dosage: 67 ML/H
     Route: 041
     Dates: start: 20171028, end: 20171028
  64. AVASTIN [Suspect]
     Active Substance: BEVACIZUMAB
     Dosage: 67 ML/H
     Route: 041
     Dates: start: 20171202, end: 20171202
  65. AVASTIN [Suspect]
     Active Substance: BEVACIZUMAB
     Dosage: 67 ML/H
     Route: 041
     Dates: start: 20180315, end: 20180426
  66. AVASTIN [Suspect]
     Active Substance: BEVACIZUMAB
     Dosage: 67 ML/H
     Route: 041
     Dates: start: 20180621, end: 20180621
  67. ELPLAT [Suspect]
     Active Substance: OXALIPLATIN
     Dosage: DOSAGE IS UNCERTAIN.
     Route: 041
     Dates: start: 20161028, end: 20161028
  68. ELPLAT [Suspect]
     Active Substance: OXALIPLATIN
     Dosage: DOSAGE IS UNCERTAIN.
     Route: 041
     Dates: start: 20180301, end: 20180426
  69. CALCIUM LEVOFOLINATE [Suspect]
     Active Substance: LEVOLEUCOVORIN CALCIUM
     Dosage: DOSAGE IS UNCERTAIN.
     Route: 041
     Dates: start: 20160709, end: 20160709
  70. CALCIUM LEVOFOLINATE [Suspect]
     Active Substance: LEVOLEUCOVORIN CALCIUM
     Dosage: DOSAGE IS UNCERTAIN.
     Route: 041
     Dates: start: 20160820, end: 20160903
  71. CALCIUM LEVOFOLINATE [Suspect]
     Active Substance: LEVOLEUCOVORIN CALCIUM
     Dosage: DOSAGE IS UNCERTAIN.
     Route: 041
     Dates: start: 20170428, end: 20170428
  72. CALCIUM LEVOFOLINATE [Suspect]
     Active Substance: LEVOLEUCOVORIN CALCIUM
     Dosage: DOSAGE IS UNCERTAIN.
     Route: 041
     Dates: start: 20180301, end: 20180301
  73. ALOXI [Concomitant]
     Active Substance: PALONOSETRON HYDROCHLORIDE
     Dosage: UNCERTAIN DOSAGE AND 100ML/H
     Route: 041
     Dates: start: 20160611, end: 20160611
  74. ALOXI [Concomitant]
     Active Substance: PALONOSETRON HYDROCHLORIDE
     Dosage: UNCERTAIN DOSAGE AND 100ML/H
     Route: 041
     Dates: start: 20160709, end: 20160709
  75. ALOXI [Concomitant]
     Active Substance: PALONOSETRON HYDROCHLORIDE
     Dosage: UNCERTAIN DOSAGE AND 100ML/H
     Route: 041
     Dates: start: 20180301, end: 20180301
  76. DECADRON [Concomitant]
     Active Substance: DEXAMETHASONE
     Dosage: 100ML/H
     Route: 065
     Dates: start: 20160709, end: 20160709
  77. DECADRON [Concomitant]
     Active Substance: DEXAMETHASONE
     Dosage: 100ML/H
     Route: 065
     Dates: start: 20161029, end: 20161029
  78. DECADRON [Concomitant]
     Active Substance: DEXAMETHASONE
     Dosage: 100ML/H
     Route: 065
     Dates: start: 20170428, end: 20170428
  79. DECADRON [Concomitant]
     Active Substance: DEXAMETHASONE
     Dosage: 100ML/H
     Route: 065
     Dates: start: 20180301, end: 20180301
  80. DECADRON [Concomitant]
     Active Substance: DEXAMETHASONE
     Dosage: 100ML/H
     Route: 065
     Dates: start: 20180529, end: 20180529
  81. AVASTIN [Suspect]
     Active Substance: BEVACIZUMAB
     Dosage: 200ML/HR
     Route: 041
     Dates: start: 20160709, end: 20160709
  82. AVASTIN [Suspect]
     Active Substance: BEVACIZUMAB
     Dosage: 67 ML/H
     Route: 041
     Dates: start: 20170722, end: 20170722
  83. AVASTIN [Suspect]
     Active Substance: BEVACIZUMAB
     Dosage: 67 ML/H
     Route: 041
     Dates: start: 20180301, end: 20180301
  84. ELPLAT [Suspect]
     Active Substance: OXALIPLATIN
     Dosage: DOSAGE IS UNCERTAIN.
     Route: 041
     Dates: start: 20160820, end: 20160903
  85. ELPLAT [Suspect]
     Active Substance: OXALIPLATIN
     Dosage: DOSAGE IS UNCERTAIN.
     Route: 041
     Dates: start: 20161203, end: 20161224
  86. ELPLAT [Suspect]
     Active Substance: OXALIPLATIN
     Dosage: DOSAGE IS UNCERTAIN.
     Route: 041
     Dates: start: 20171012, end: 20171012
  87. ELPLAT [Suspect]
     Active Substance: OXALIPLATIN
     Dosage: DOSAGE IS UNCERTAIN.
     Route: 041
     Dates: start: 20180529, end: 20180529
  88. CALCIUM LEVOFOLINATE [Suspect]
     Active Substance: LEVOLEUCOVORIN CALCIUM
     Dosage: DOSAGE IS UNCERTAIN.
     Route: 041
     Dates: start: 20161028, end: 20161028
  89. CALCIUM LEVOFOLINATE [Suspect]
     Active Substance: LEVOLEUCOVORIN CALCIUM
     Dosage: DOSAGE IS UNCERTAIN.
     Route: 041
     Dates: start: 20170520, end: 20170520
  90. CALCIUM LEVOFOLINATE [Suspect]
     Active Substance: LEVOLEUCOVORIN CALCIUM
     Dosage: DOSAGE IS UNCERTAIN.
     Route: 041
     Dates: start: 20170617, end: 20170617
  91. CALCIUM LEVOFOLINATE [Suspect]
     Active Substance: LEVOLEUCOVORIN CALCIUM
     Dosage: DOSAGE IS UNCERTAIN.
     Route: 041
     Dates: start: 20170722, end: 20170722
  92. CALCIUM LEVOFOLINATE [Suspect]
     Active Substance: LEVOLEUCOVORIN CALCIUM
     Dosage: DOSAGE IS UNCERTAIN.
     Route: 041
     Dates: start: 20171228, end: 20171228
  93. ALOXI [Concomitant]
     Active Substance: PALONOSETRON HYDROCHLORIDE
     Dosage: UNCERTAIN DOSAGE AND 100ML/H
     Route: 041
     Dates: start: 20161001, end: 20161001
  94. ALOXI [Concomitant]
     Active Substance: PALONOSETRON HYDROCHLORIDE
     Dosage: UNCERTAIN DOSAGE AND 100ML/H
     Route: 041
     Dates: start: 20171202, end: 20171202
  95. ALOXI [Concomitant]
     Active Substance: PALONOSETRON HYDROCHLORIDE
     Dosage: UNCERTAIN DOSAGE AND 100ML/H
     Route: 041
     Dates: start: 20180529, end: 20180529
  96. DECADRON [Concomitant]
     Active Substance: DEXAMETHASONE
     Dosage: 100ML/H
     Route: 065
     Dates: start: 20160625, end: 20160625
  97. DECADRON [Concomitant]
     Active Substance: DEXAMETHASONE
     Dosage: 100ML/H
     Route: 065
     Dates: start: 20160723, end: 20160723
  98. DECADRON [Concomitant]
     Active Substance: DEXAMETHASONE
     Dosage: 100ML/H
     Route: 065
     Dates: start: 20161001, end: 20161001
  99. DECADRON [Concomitant]
     Active Substance: DEXAMETHASONE
     Dosage: 100ML/H
     Route: 065
     Dates: start: 20180621, end: 20180621
  100. AVASTIN [Suspect]
     Active Substance: BEVACIZUMAB
     Indication: RECTAL CANCER
     Route: 041
     Dates: start: 20160611, end: 20160611
  101. ELPLAT [Suspect]
     Active Substance: OXALIPLATIN
     Dosage: DOSAGE IS UNCERTAIN.
     Route: 041
     Dates: start: 20160723, end: 20160723
  102. ELPLAT [Suspect]
     Active Substance: OXALIPLATIN
     Dosage: DOSAGE IS UNCERTAIN.
     Route: 041
     Dates: start: 20171202, end: 20171202
  103. CALCIUM LEVOFOLINATE [Suspect]
     Active Substance: LEVOLEUCOVORIN CALCIUM
     Dosage: DOSAGE IS UNCERTAIN.
     Route: 041
     Dates: start: 20180707, end: 20180707
  104. FLUOROURACIL. [Concomitant]
     Active Substance: FLUOROURACIL
     Dosage: DOSAGE IS UNCERTAIN.
     Route: 041
     Dates: start: 2016
  105. DECADRON [Concomitant]
     Active Substance: DEXAMETHASONE
     Dosage: 100ML/H
     Route: 065
     Dates: start: 20180707, end: 20180707

REACTIONS (27)
  - Protein urine [Recovered/Resolved]
  - Salivary gland pain [Unknown]
  - Nausea [Unknown]
  - Constipation [Unknown]
  - Urticaria [Recovering/Resolving]
  - Stomatitis [Unknown]
  - Somnolence [Unknown]
  - Hypoaesthesia oral [Unknown]
  - Eye pain [Unknown]
  - Dizziness [Unknown]
  - Yellow skin [Unknown]
  - Faeces discoloured [Unknown]
  - Diarrhoea [Unknown]
  - Anal haemorrhage [Unknown]
  - Malaise [Unknown]
  - White blood cell count decreased [Recovering/Resolving]
  - Alopecia [Unknown]
  - Nasal cavity mass [Unknown]
  - Rhinalgia [Unknown]
  - Hypoaesthesia oral [Unknown]
  - Proctalgia [Unknown]
  - Neuropathy peripheral [Recovering/Resolving]
  - Neutrophil count decreased [Recovering/Resolving]
  - Pigmentation disorder [Unknown]
  - Onychoclasis [Unknown]
  - Epistaxis [Unknown]
  - Central pain syndrome [Unknown]

NARRATIVE: CASE EVENT DATE: 20160611
